FAERS Safety Report 16607554 (Version 1)
Quarter: 2019Q3

REPORT INFORMATION
  Report Type: Spontaneous
  Country: GB (occurrence: GB)
  Receive Date: 20190722
  Receipt Date: 20190722
  Transmission Date: 20191004
  Serious: Yes (Hospitalization)
  Sender: FDA-Public Use
  Company Number: GB-ACCORD-139305

PATIENT
  Age: 12 Year
  Sex: Female
  Weight: 50 kg

DRUGS (5)
  1. METHOTREXATE. [Suspect]
     Active Substance: METHOTREXATE
     Indication: JUVENILE IDIOPATHIC ARTHRITIS
     Route: 058
     Dates: start: 2008, end: 20190611
  2. LANSOPRAZOLE. [Concomitant]
     Active Substance: LANSOPRAZOLE
  3. ABATACEPT [Suspect]
     Active Substance: ABATACEPT
     Indication: JUVENILE IDIOPATHIC ARTHRITIS
     Route: 042
     Dates: start: 20160505, end: 20190605
  4. FOLIC ACID. [Concomitant]
     Active Substance: FOLIC ACID
  5. NAPROXEN. [Concomitant]
     Active Substance: NAPROXEN

REACTIONS (8)
  - Feeling abnormal [Unknown]
  - Generalised tonic-clonic seizure [Unknown]
  - Demyelination [Unknown]
  - Headache [Unknown]
  - Affect lability [Unknown]
  - Encephalitis [Unknown]
  - Malaise [Unknown]
  - Personality change [Unknown]

NARRATIVE: CASE EVENT DATE: 20190610
